APPROVED DRUG PRODUCT: IBUPROFEN AND PSEUDOEPHEDRINE HYDROCHLORIDE
Active Ingredient: IBUPROFEN; PSEUDOEPHEDRINE HYDROCHLORIDE
Strength: 100MG/5ML;15MG/5ML
Dosage Form/Route: SUSPENSION;ORAL
Application: A076478 | Product #001
Applicant: L PERRIGO CO
Approved: Nov 5, 2003 | RLD: No | RS: No | Type: DISCN